FAERS Safety Report 19082957 (Version 1)
Quarter: 2021Q2

REPORT INFORMATION
  Report Type: Spontaneous
  Country: NL (occurrence: NL)
  Receive Date: 20210401
  Receipt Date: 20210401
  Transmission Date: 20210717
  Serious: Yes (Other)
  Sender: FDA-Public Use
  Company Number: NL-ACCORD-221491

PATIENT
  Sex: Male
  Weight: 78 kg

DRUGS (3)
  1. SALBUTAMOL 100 REDIHALER [Concomitant]
     Dosage: 100 MICROGRAMS PER DOSE?100MCG / DO SPB 200 D + INH
  2. MONTELUKAST [Suspect]
     Active Substance: MONTELUKAST SODIUM
     Indication: ASTHMA
     Dosage: 10 MG, 1X PER DAY 1 PIECE
     Dates: start: 202101, end: 20210226
  3. DYMISTA [Concomitant]
     Active Substance: AZELASTINE HYDROCHLORIDE\FLUTICASONE PROPIONATE
     Dosage: 137/50 (MICROGRAMS PER DOSE)?137/50 MCG / DO VIAL 120 DO

REACTIONS (2)
  - Emotional poverty [Not Recovered/Not Resolved]
  - Erectile dysfunction [Not Recovered/Not Resolved]
